FAERS Safety Report 11696610 (Version 3)
Quarter: 2015Q4

REPORT INFORMATION
  Report Type: Report from Study
  Country: JP (occurrence: JP)
  Receive Date: 20151104
  Receipt Date: 20151217
  Transmission Date: 20160304
  Serious: Yes (Hospitalization)
  Sender: FDA-Public Use
  Company Number: JP-VIFOR (INTERNATIONAL) INC.-VIT-2015-02968

PATIENT
  Age: 77 Year
  Sex: Female

DRUGS (31)
  1. ATP [Concomitant]
     Active Substance: ADENOSINE TRIPHOSPHATE DISODIUM
     Route: 042
     Dates: end: 20131030
  2. CARDENALIN [Concomitant]
     Active Substance: DOXAZOSIN MESYLATE
     Route: 048
     Dates: start: 20131224, end: 20140602
  3. MIRCERA [Suspect]
     Active Substance: METHOXY POLYETHYLENE GLYCOL-EPOETIN BETA
     Route: 058
     Dates: start: 20140208, end: 20140416
  4. DIAINAMIX [Concomitant]
     Route: 042
     Dates: end: 20131030
  5. DIART [Concomitant]
     Active Substance: AZOSEMIDE
     Route: 048
     Dates: start: 20131214, end: 20140416
  6. FLUITRAN [Concomitant]
     Active Substance: TRICHLORMETHIAZIDE
     Route: 048
     Dates: start: 20150626
  7. LASIX [Concomitant]
     Active Substance: FUROSEMIDE
     Route: 048
     Dates: start: 20150625
  8. ARGAMATE [Concomitant]
     Active Substance: CALCIUM POLYSTYRENE SULFONATE
     Indication: NEPHROSCLEROSIS
     Route: 048
     Dates: start: 20150625
  9. AMLODIPINE [Concomitant]
     Active Substance: AMLODIPINE BESYLATE
     Route: 048
     Dates: start: 20150625
  10. CINAL [Concomitant]
     Active Substance: ASCORBIC ACID\CALCIUM PANTOTHENATE
     Route: 048
     Dates: start: 20140502, end: 20140626
  11. MAGLAX [Concomitant]
     Active Substance: MAGNESIUM OXIDE
  12. NORVASC [Concomitant]
     Active Substance: AMLODIPINE BESYLATE
     Route: 048
     Dates: start: 20131030
  13. LANIRAPID [Concomitant]
     Active Substance: METILDIGOXIN
     Route: 048
     Dates: end: 20140626
  14. MUCOSTA [Concomitant]
     Active Substance: REBAMIPIDE
     Route: 048
     Dates: end: 20140626
  15. MUCOSTA [Concomitant]
     Active Substance: REBAMIPIDE
     Route: 048
     Dates: start: 20150625
  16. AMIPAREN [Concomitant]
     Route: 042
     Dates: end: 20131030
  17. NATRIX [Concomitant]
     Active Substance: INDAPAMIDE
     Route: 048
     Dates: end: 20131213
  18. CARDENALIN [Concomitant]
     Active Substance: DOXAZOSIN MESYLATE
     Route: 048
     Dates: start: 20140603, end: 20140625
  19. PNEUMOVAX 23 [Concomitant]
     Active Substance: PNEUMOCOCCAL VACCINE, POLYVALENT 23
     Route: 058
     Dates: start: 20131213, end: 20131213
  20. FERROUS SULFATE [Concomitant]
     Active Substance: FERROUS SULFATE\FERROUS SULFATE, DRIED
     Route: 048
     Dates: start: 20150625, end: 20150626
  21. PERSANTIN [Concomitant]
     Active Substance: DIPYRIDAMOLE
     Indication: NEPHROSCLEROSIS
     Route: 048
     Dates: start: 20150625
  22. MIRCERA [Suspect]
     Active Substance: METHOXY POLYETHYLENE GLYCOL-EPOETIN BETA
     Indication: NEPHROGENIC ANAEMIA
     Route: 058
     Dates: start: 20130911
  23. ASCORBIC ACID. [Concomitant]
     Active Substance: ASCORBIC ACID
     Route: 042
     Dates: end: 20131030
  24. FERROUS SULFATE [Concomitant]
     Active Substance: FERROUS SULFATE\FERROUS SULFATE, DRIED
     Route: 048
     Dates: start: 20140502, end: 20140626
  25. AVAPRO [Concomitant]
     Active Substance: IRBESARTAN
     Route: 048
     Dates: start: 20150626
  26. FESIN [Concomitant]
     Active Substance: IRON SUCROSE
     Route: 042
     Dates: start: 20140416, end: 20140416
  27. GLUCOSE [Concomitant]
     Active Substance: DEXTROSE
     Route: 042
     Dates: start: 20140416, end: 20140416
  28. DIART [Concomitant]
     Active Substance: AZOSEMIDE
     Route: 048
     Dates: start: 20140417, end: 20140626
  29. KALIMATE [Concomitant]
     Active Substance: CALCIUM POLYSTYRENE SULFONATE
     Indication: NEPHROSCLEROSIS
     Route: 048
     Dates: start: 20140210, end: 20140222
  30. NEXIUM [Concomitant]
     Active Substance: ESOMEPRAZOLE MAGNESIUM
     Route: 048
     Dates: start: 20150625
  31. THIOSPEN [Concomitant]

REACTIONS (2)
  - Arteriosclerosis [Unknown]
  - Colon cancer [Unknown]

NARRATIVE: CASE EVENT DATE: 20131001
